FAERS Safety Report 24380297 (Version 1)
Quarter: 2024Q3

REPORT INFORMATION
  Report Type: Other
  Country: US (occurrence: US)
  Receive Date: 20240930
  Receipt Date: 20240930
  Transmission Date: 20241017
  Serious: No
  Sender: TRAVERE THERAPEUTICS
  Company Number: US-TRAVERE-2024TVT00897

PATIENT
  Age: 65 Year
  Sex: Male

DRUGS (2)
  1. FILSPARI [Suspect]
     Active Substance: SPARSENTAN
     Indication: Proteinuria
     Route: 048
     Dates: start: 202403
  2. FARXIGA [Suspect]
     Active Substance: DAPAGLIFLOZIN PROPANEDIOL
     Indication: Product used for unknown indication

REACTIONS (2)
  - Product use in unapproved indication [Unknown]
  - Arthralgia [None]

NARRATIVE: CASE EVENT DATE: 20240301
